FAERS Safety Report 23819424 (Version 1)
Quarter: 2024Q2

REPORT INFORMATION
  Report Type: Spontaneous
  Country: GB (occurrence: GB)
  Receive Date: 20240506
  Receipt Date: 20240506
  Transmission Date: 20240716
  Serious: Yes (Death)
  Sender: FDA-Public Use
  Company Number: GB-GERMAN-LIT/GBR/24/0006661

PATIENT
  Sex: Male

DRUGS (2)
  1. PEMETREXED [Suspect]
     Active Substance: PEMETREXED
     Indication: Mesothelioma
  2. CISPLATIN [Concomitant]
     Active Substance: CISPLATIN
     Indication: Mesothelioma

REACTIONS (2)
  - Disease progression [Fatal]
  - Treatment failure [Fatal]
